FAERS Safety Report 11982674 (Version 1)
Quarter: 2016Q1

REPORT INFORMATION
  Report Type: Spontaneous
  Country: US (occurrence: None)
  Receive Date: 20160129
  Receipt Date: 20160129
  Transmission Date: 20160526
  Serious: Yes (Hospitalization)
  Sender: FDA-Public Use
  Company Number: None

PATIENT
  Age: 68 Year
  Sex: Female
  Weight: 61.69 kg

DRUGS (5)
  1. XELJANZ [Suspect]
     Active Substance: TOFACITINIB CITRATE
     Indication: RHEUMATOID ARTHRITIS
     Route: 048
     Dates: start: 20150212, end: 20151012
  2. ACYCLOVIR. [Concomitant]
     Active Substance: ACYCLOVIR
  3. TYLENOL [Concomitant]
     Active Substance: ACETAMINOPHEN
  4. DULOXETINE. [Concomitant]
     Active Substance: DULOXETINE
  5. METHYLPRENDISOLONE [Concomitant]

REACTIONS (2)
  - Infection [None]
  - Abscess [None]

NARRATIVE: CASE EVENT DATE: 20151012
